FAERS Safety Report 13800971 (Version 1)
Quarter: 2017Q3

REPORT INFORMATION
  Report Type: Spontaneous
  Country: US (occurrence: US)
  Receive Date: 20170727
  Receipt Date: 20170727
  Transmission Date: 20171127
  Serious: No
  Sender: FDA-Public Use
  Company Number: US-BAYER-2017-136810

PATIENT
  Sex: Female

DRUGS (2)
  1. MIRALAX [Suspect]
     Active Substance: POLYETHYLENE GLYCOL 3350
     Indication: GASTROINTESTINAL DISORDER
     Dosage: 1 DF, BID
     Route: 048
     Dates: end: 20170716
  2. PROPRANOLOL [Concomitant]
     Active Substance: PROPRANOLOL HYDROCHLORIDE

REACTIONS (6)
  - Constipation [Unknown]
  - Inappropriate prescribing [Unknown]
  - Circumstance or information capable of leading to medication error [Unknown]
  - Product use issue [Unknown]
  - Wrong technique in product usage process [Unknown]
  - Drug ineffective [Unknown]
